FAERS Safety Report 9648846 (Version 2)
Quarter: 2013Q4

REPORT INFORMATION
  Report Type: Report from Study
  Country: US (occurrence: US)
  Receive Date: 20131028
  Receipt Date: 20131106
  Transmission Date: 20140711
  Serious: Yes (Hospitalization, Other)
  Sender: FDA-Public Use
  Company Number: US-SA-2013SA107898

PATIENT
  Age: 78 Year
  Sex: Male
  Weight: 76.6 kg

DRUGS (5)
  1. DOCETAXEL [Suspect]
     Indication: METASTATIC CARCINOMA OF THE BLADDER
     Route: 042
     Dates: start: 20130305, end: 20130305
  2. RAMUCIRUMAB [Suspect]
     Indication: METASTATIC CARCINOMA OF THE BLADDER
     Route: 042
     Dates: start: 20130305, end: 20130305
  3. AMBIEN [Concomitant]
     Route: 065
  4. OXYCODONE [Concomitant]
     Route: 065
  5. VALTREX [Concomitant]
     Route: 065
     Dates: start: 20130320

REACTIONS (3)
  - Thrombocytopenia [Not Recovered/Not Resolved]
  - Stomatitis [Recovered/Resolved]
  - Pyrexia [Unknown]
